FAERS Safety Report 4954531-6 (Version None)
Quarter: 2006Q1

REPORT INFORMATION
  Report Type: 
  Country: None (occurrence: None)
  Receive Date: 20060322
  Receipt Date: 20060306
  Transmission Date: 20060701
  Serious: Yes (Hospitalization)
  Sender: FDA-Public Use
  Company Number: DSA_27862_2006

PATIENT
  Age: 36 Year
  Sex: Female

DRUGS (3)
  1. TAVOR [Suspect]
     Dosage: DF ONCE PO
     Route: 048
     Dates: start: 20060303, end: 20060303
  2. SEROQUEL [Suspect]
     Dosage: DF ONCE PO
     Route: 048
     Dates: start: 20060303, end: 20060303
  3. TRUXAL [Suspect]
     Dosage: DF ONCE PO
     Route: 048
     Dates: start: 20060303, end: 20060303

REACTIONS (6)
  - ARTERIAL INJURY [None]
  - COMA [None]
  - INJURY ASPHYXIATION [None]
  - MULTIPLE DRUG OVERDOSE INTENTIONAL [None]
  - SUICIDE ATTEMPT [None]
  - TACHYCARDIA [None]
